FAERS Safety Report 8622249-4 (Version None)
Quarter: 2012Q3

REPORT INFORMATION
  Report Type: 
  Country: None (occurrence: None)
  Receive Date: 20120827
  Receipt Date: 20120727
  Transmission Date: 20120928
  Serious: No
  Sender: FDA-Public Use
  Company Number: US-009507513-1207USA002768

PATIENT

DRUGS (3)
  1. VARIVAX [Suspect]
     Indication: PROPHYLAXIS
  2. ZOSTAVAX [Suspect]
     Indication: PROPHYLAXIS
  3. DSM STERILE DILUENT [Suspect]

REACTIONS (2)
  - EXPIRED DRUG ADMINISTERED [None]
  - NO ADVERSE EVENT [None]
